FAERS Safety Report 6162311-1 (Version None)
Quarter: 2009Q2

REPORT INFORMATION
  Report Type: 
  Country: None (occurrence: None)
  Receive Date: 20090421
  Receipt Date: 20090408
  Transmission Date: 20091009
  Serious: Yes (Death)
  Sender: FDA-Public Use
  Company Number: TW-PFIZER INC-2009196233

PATIENT

DRUGS (2)
  1. SUTENT [Suspect]
     Indication: COLON CANCER
     Route: 048
  2. CELEBREX [Suspect]
     Indication: COLON CANCER
     Route: 048

REACTIONS (1)
  - MICROANGIOPATHIC HAEMOLYTIC ANAEMIA [None]
